FAERS Safety Report 21996881 (Version 1)
Quarter: 2023Q1

REPORT INFORMATION
  Report Type: Spontaneous
  Country: US (occurrence: US)
  Receive Date: 20230215
  Receipt Date: 20230215
  Transmission Date: 20230417
  Serious: No
  Sender: FDA-Public Use
  Company Number: US-GILEAD-2023-0615972

PATIENT
  Age: 32 Year
  Sex: Female

DRUGS (6)
  1. TENOFOVIR DISOPROXIL FUMARATE [Suspect]
     Active Substance: TENOFOVIR DISOPROXIL FUMARATE
     Indication: HIV infection
     Route: 065
  2. EMTRICITABINE [Suspect]
     Active Substance: EMTRICITABINE
     Indication: HIV infection
     Route: 065
  3. DARUNAVIR [Concomitant]
     Active Substance: DARUNAVIR
  4. DOLUTEGRAVIR [Concomitant]
     Active Substance: DOLUTEGRAVIR
  5. LAMIVUDINE [Concomitant]
     Active Substance: LAMIVUDINE
  6. RITONAVIR [Concomitant]
     Active Substance: RITONAVIR

REACTIONS (1)
  - Drug resistance [Unknown]
